FAERS Safety Report 12463500 (Version 3)
Quarter: 2017Q2

REPORT INFORMATION
  Report Type: Report from Study
  Country: DK (occurrence: DK)
  Receive Date: 20160614
  Receipt Date: 20170525
  Transmission Date: 20170830
  Serious: Yes (Hospitalization)
  Sender: FDA-Public Use
  Company Number: DK-ROCHE-1740166

PATIENT
  Age: 12 Year
  Sex: Female
  Weight: 71.7 kg

DRUGS (35)
  1. KALEORID [Concomitant]
     Active Substance: POTASSIUM CHLORIDE
     Indication: HYPOKALAEMIA
     Route: 065
  2. METHADONE [Concomitant]
     Active Substance: METHADONE HYDROCHLORIDE
     Indication: PAIN
     Route: 065
     Dates: start: 20160429
  3. GRANISETRON [Concomitant]
     Active Substance: GRANISETRON
     Indication: NAUSEA
     Route: 065
     Dates: start: 20160502
  4. EMLA [Concomitant]
     Active Substance: LIDOCAINE\PRILOCAINE
  5. ALVEDON [Concomitant]
     Active Substance: ACETAMINOPHEN
     Indication: PAIN
     Route: 048
  6. CATAPRESAN [Concomitant]
     Active Substance: CLONIDINE
     Route: 048
     Dates: start: 20160218
  7. FLOXACILLIN SODIUM [Concomitant]
     Active Substance: FLUCLOXACILLIN SODIUM ANHYDROUS
     Route: 065
     Dates: start: 20160419, end: 20160421
  8. BETAMETHASON [Concomitant]
     Active Substance: BETAMETHASONE
     Indication: NAUSEA
     Route: 048
     Dates: start: 20160517, end: 20160518
  9. ZOFRAN [Concomitant]
     Active Substance: ONDANSETRON HYDROCHLORIDE
     Indication: NAUSEA
  10. TAVEGYL [Concomitant]
     Active Substance: CLEMASTINE FUMARATE
     Route: 065
     Dates: start: 20150520
  11. NALOXONE [Concomitant]
     Active Substance: NALOXONE
     Indication: CONSTIPATION
     Route: 048
     Dates: start: 20160331
  12. CILAXORAL [Concomitant]
     Active Substance: SODIUM PICOSULFATE
     Indication: CONSTIPATION
  13. OXIS [Concomitant]
     Active Substance: FORMOTEROL FUMARATE
     Route: 065
     Dates: start: 20140317
  14. PARACETAMOL [Concomitant]
     Active Substance: ACETAMINOPHEN
     Indication: PAIN
     Route: 042
     Dates: start: 20150928
  15. ATEZOLIZUMAB [Suspect]
     Active Substance: ATEZOLIZUMAB
     Indication: NEOPLASM
     Dosage: MOST RECENT DOSE WAS 1080 MG ADMINISTERED ON 06/APR/2016
     Route: 042
     Dates: start: 20160316
  16. MORPHINE [Concomitant]
     Active Substance: MORPHINE
     Indication: PAIN
     Route: 048
  17. MATRIFEN [Concomitant]
     Active Substance: FENTANYL
     Indication: PAIN
     Route: 062
     Dates: start: 20160427, end: 20160518
  18. LAXOBERAL [Concomitant]
     Active Substance: SODIUM PICOSULFATE
     Indication: CONSTIPATION
     Route: 065
     Dates: start: 20160409
  19. CELECOXIB. [Concomitant]
     Active Substance: CELECOXIB
     Indication: PAIN
     Route: 048
  20. MATRIFEN [Concomitant]
     Active Substance: FENTANYL
     Route: 062
     Dates: start: 20160518
  21. CATAPRES [Concomitant]
     Active Substance: CLONIDINE HYDROCHLORIDE
     Indication: PAIN
     Route: 042
     Dates: start: 20160427
  22. MOVENTIG [Concomitant]
     Active Substance: NALOXEGOL OXALATE
     Route: 048
     Dates: start: 20160419
  23. TARGIN [Concomitant]
     Active Substance: NALOXONE HYDROCHLORIDE\OXYCODONE HYDROCHLORIDE
     Indication: PAIN
     Route: 065
     Dates: start: 20160413, end: 20160518
  24. CEFAMOX [Concomitant]
     Route: 065
     Dates: start: 20160421, end: 20160428
  25. ADRENALIN [Concomitant]
     Active Substance: EPINEPHRINE
     Route: 065
     Dates: start: 20150520
  26. FLUCONAZOL [Concomitant]
     Active Substance: FLUCONAZOLE
     Route: 065
     Dates: start: 20160511
  27. OXYCODON [Concomitant]
     Active Substance: OXYCODONE
     Indication: PAIN
     Route: 065
     Dates: start: 20160329, end: 20160427
  28. LAKTULOSE [Concomitant]
     Indication: CONSTIPATION
     Route: 048
     Dates: start: 20160407
  29. CATAPRESAN [Concomitant]
     Active Substance: CLONIDINE
     Indication: PAIN
     Route: 048
  30. CLONIDIN [Concomitant]
     Active Substance: CLONIDINE
     Indication: PAIN
     Route: 042
     Dates: start: 20160427
  31. ANDOLEX [Concomitant]
     Dosage: MOUTHWASH
     Route: 065
  32. OMEPRAZOL [Concomitant]
     Active Substance: OMEPRAZOLE
     Indication: PROPHYLAXIS AGAINST GASTROINTESTINAL ULCER
     Route: 065
     Dates: start: 20151129
  33. DIMOR [Concomitant]
     Active Substance: LOPERAMIDE
     Indication: DIARRHOEA
     Route: 048
     Dates: start: 20151023
  34. HEPARIN [Concomitant]
     Active Substance: HEPARIN SODIUM
     Route: 065
     Dates: start: 20150909
  35. PULMICORT TURBUHALER [Concomitant]
     Active Substance: BUDESONIDE
     Route: 055
     Dates: start: 20140317

REACTIONS (2)
  - Fatigue [Not Recovered/Not Resolved]
  - Dehydration [Recovered/Resolved]

NARRATIVE: CASE EVENT DATE: 20160403
